FAERS Safety Report 18786715 (Version 1)
Quarter: 2021Q1

REPORT INFORMATION
  Report Type: Spontaneous
  Country: US (occurrence: US)
  Receive Date: 20210126
  Receipt Date: 20210126
  Transmission Date: 20210419
  Serious: Yes (Other)
  Sender: FDA-Public Use
  Company Number: None

PATIENT
  Age: 57 Year
  Sex: Male
  Weight: 89.55 kg

DRUGS (9)
  1. BAMLANIVIMAB. [Suspect]
     Active Substance: BAMLANIVIMAB
     Indication: COVID-19
     Dates: start: 20210125, end: 20210125
  2. IBUPROFEN. [Concomitant]
     Active Substance: IBUPROFEN
  3. OMEPRAZOLE. [Concomitant]
     Active Substance: OMEPRAZOLE
  4. ZINC. [Concomitant]
     Active Substance: ZINC
  5. SIMVASTATIN. [Concomitant]
     Active Substance: SIMVASTATIN
  6. GABAPENTIN. [Concomitant]
     Active Substance: GABAPENTIN
  7. FENOFIBRATE. [Concomitant]
     Active Substance: FENOFIBRATE
  8. ERGOCALCIFEROL. [Concomitant]
     Active Substance: ERGOCALCIFEROL
  9. SINUS NOSE SPRAY [Concomitant]

REACTIONS (2)
  - Dysstasia [None]
  - Chills [None]

NARRATIVE: CASE EVENT DATE: 20210125
